FAERS Safety Report 6236130-1 (Version None)
Quarter: 2009Q2

REPORT INFORMATION
  Report Type: 
  Country: None (occurrence: None)
  Receive Date: 20090619
  Receipt Date: 20090609
  Transmission Date: 20091009
  Serious: Yes (Hospitalization, Other)
  Sender: FDA-Public Use
  Company Number: JP-PFIZER INC-2009223514

PATIENT
  Age: 73 Year

DRUGS (2)
  1. CABASER [Suspect]
     Indication: PARKINSON'S DISEASE
     Route: 048
     Dates: start: 20020501, end: 20090501
  2. MENESIT [Concomitant]
     Route: 048

REACTIONS (2)
  - HALLUCINATION [None]
  - PNEUMONIA [None]
